FAERS Safety Report 7728187-3 (Version None)
Quarter: 2011Q3

REPORT INFORMATION
  Report Type: 
  Country: None (occurrence: None)
  Receive Date: 20110905
  Receipt Date: 20110825
  Transmission Date: 20111222
  Serious: Yes (Life-Threatening, Hospitalization, Other)
  Sender: FDA-Public Use
  Company Number: PHEH2011US02569

PATIENT
  Sex: Female

DRUGS (1)
  1. GILENYA [Suspect]
     Indication: MULTIPLE SCLEROSIS
     Dosage: 0.5 MG, QD
     Route: 048
     Dates: start: 20110812

REACTIONS (6)
  - PAIN IN EXTREMITY [None]
  - CHEST PAIN [None]
  - MYOCARDIAL INFARCTION [None]
  - CHEST DISCOMFORT [None]
  - VOMITING [None]
  - BRADYCARDIA [None]
